FAERS Safety Report 6129278-3 (Version None)
Quarter: 2009Q1

REPORT INFORMATION
  Report Type: 
  Country: None (occurrence: None)
  Receive Date: 20090324
  Receipt Date: 20090316
  Transmission Date: 20090719
  Serious: Yes (Other)
  Sender: FDA-Public Use
  Company Number: US-AMGEN-QUU338484

PATIENT
  Age: 81 Year
  Sex: Female

DRUGS (3)
  1. NEUPOGEN [Suspect]
     Indication: CHEMOTHERAPY
     Dates: start: 20090101
  2. CARBOPLATIN [Concomitant]
  3. TAXOL [Concomitant]

REACTIONS (3)
  - DIZZINESS [None]
  - INJECTION SITE PAIN [None]
  - PRESYNCOPE [None]
